FAERS Safety Report 5312314-1 (Version None)
Quarter: 2007Q2

REPORT INFORMATION
  Report Type: 
  Country: None (occurrence: None)
  Receive Date: 20070430
  Receipt Date: 20061108
  Transmission Date: 20071010
  Serious: No
  Sender: FDA-Public Use
  Company Number: 2006UW19642

PATIENT
  Age: 50 Year
  Sex: Female
  Weight: 93.6 kg

DRUGS (4)
  1. NEXIUM [Suspect]
     Route: 048
  2. PRILOSEC OTC [Suspect]
     Indication: DYSPEPSIA
     Route: 048
     Dates: start: 20060927, end: 20061007
  3. METFORMIN HCL [Concomitant]
  4. HYZAAR [Concomitant]

REACTIONS (5)
  - DIZZINESS [None]
  - FATIGUE [None]
  - MUSCULOSKELETAL PAIN [None]
  - NECK PAIN [None]
  - VOMITING [None]
